FAERS Safety Report 17351068 (Version 2)
Quarter: 2020Q1

REPORT INFORMATION
  Report Type: Spontaneous
  Country: US (occurrence: US)
  Receive Date: 20200130
  Receipt Date: 20200326
  Transmission Date: 20200409
  Serious: Yes (Other)
  Sender: FDA-Public Use
  Company Number: US-009507513-2001USA009958

PATIENT
  Age: 21 Year
  Sex: Female
  Weight: 58.05 kg

DRUGS (2)
  1. NEXPLANON [Suspect]
     Active Substance: ETONOGESTREL
     Dosage: 1 DOSAGE FORM, RIGHT ARM
     Route: 059
     Dates: start: 20200127
  2. NEXPLANON [Suspect]
     Active Substance: ETONOGESTREL
     Indication: CONTRACEPTION
     Dosage: 68 MG, 1 ROD EVERY 3 YEARS, LEFT UPPER ARM
     Route: 059
     Dates: start: 20180219, end: 20200127

REACTIONS (7)
  - Device dislocation [Recovered/Resolved]
  - Neuralgia [Unknown]
  - Complication associated with device [Recovered/Resolved]
  - General anaesthesia [Unknown]
  - Device deployment issue [Recovered/Resolved]
  - Cervix disorder [Unknown]
  - Complication of device removal [Recovered/Resolved]

NARRATIVE: CASE EVENT DATE: 20190209
